FAERS Safety Report 4423310-0 (Version None)
Quarter: 2004Q3

REPORT INFORMATION
  Report Type: 
  Country: None (occurrence: None)
  Receive Date: 20040810
  Receipt Date: 20040810
  Transmission Date: 20050211
  Serious: Yes (Other)
  Sender: FDA-Public Use
  Company Number: None

PATIENT
  Age: 60 Year
  Sex: Male
  Weight: 95.2554 kg

DRUGS (1)
  1. IMITREX [Suspect]
     Dosage: 50 MG AS NEEDED ORAL
     Route: 048

REACTIONS (2)
  - ARTHROPATHY [None]
  - DIFFICULTY IN WALKING [None]
